FAERS Safety Report 6768391-4 (Version None)
Quarter: 2010Q2

REPORT INFORMATION
  Report Type: 
  Country: None (occurrence: None)
  Receive Date: 20100614
  Receipt Date: 20100603
  Transmission Date: 20101027
  Serious: Yes (Other)
  Sender: FDA-Public Use
  Company Number: US-PFIZER INC-2010070184

PATIENT
  Age: 35 Year
  Sex: Female

DRUGS (7)
  1. GEODON [Suspect]
     Dosage: UNK
     Route: 048
  2. LAMICTAL [Concomitant]
     Dosage: 200 MG, UNK
     Route: 048
  3. PROTONIX [Concomitant]
     Indication: GASTRIC DISORDER
     Dosage: UNK
     Route: 048
  4. IMITREX [Concomitant]
     Indication: MIGRAINE
     Dosage: UNK
     Route: 048
  5. ATIVAN [Concomitant]
     Dosage: UNK
     Route: 048
  6. HYDROCODONE [Concomitant]
     Indication: PAIN
     Dosage: UNK
  7. MONTELUKAST SODIUM [Concomitant]
     Indication: HYPERSENSITIVITY
     Dosage: UNK

REACTIONS (1)
  - HEPATIC CIRRHOSIS [None]
